FAERS Safety Report 6377380-3 (Version None)
Quarter: 2009Q3

REPORT INFORMATION
  Report Type: 
  Country: None (occurrence: None)
  Receive Date: 20090925
  Receipt Date: 20090916
  Transmission Date: 20100115
  Serious: Yes (Hospitalization)
  Sender: FDA-Public Use
  Company Number: CA-JNJFOC-20090904944

PATIENT
  Sex: Male

DRUGS (5)
  1. RISPERIDONE [Suspect]
     Indication: SCHIZOPHRENIA
     Route: 048
     Dates: end: 20090830
  2. FLUPENTIXOL [Suspect]
     Indication: SCHIZOPHRENIA
     Route: 065
     Dates: end: 20090830
  3. CLOZAPINE [Suspect]
     Dosage: 25 MG AT 20:00 HRS AND 75 MG AT BEDTIME
     Route: 065
     Dates: start: 20090812
  4. CLOZAPINE [Suspect]
     Indication: DRUG USE FOR UNKNOWN INDICATION
     Route: 065
     Dates: start: 20090812
  5. HALDOL [Suspect]
     Indication: SCHIZOPHRENIA
     Route: 048
     Dates: end: 20090831

REACTIONS (13)
  - ABDOMINAL PAIN [None]
  - ABNORMAL BEHAVIOUR [None]
  - DECREASED APPETITE [None]
  - DIARRHOEA [None]
  - DRUG INEFFECTIVE [None]
  - EOSINOPHILIA [None]
  - FOLLICULITIS [None]
  - HEADACHE [None]
  - MYOCARDITIS [None]
  - NAUSEA [None]
  - NEUROLEPTIC MALIGNANT SYNDROME [None]
  - SINUS TACHYCARDIA [None]
  - WHITE BLOOD CELL COUNT INCREASED [None]
